FAERS Safety Report 20903269 (Version 2)
Quarter: 2022Q2

REPORT INFORMATION
  Report Type: Spontaneous
  Country: US (occurrence: US)
  Receive Date: 20220601
  Receipt Date: 20220614
  Transmission Date: 20220720
  Serious: No
  Sender: FDA-Public Use
  Company Number: US-BEH-2022146002

PATIENT
  Sex: Female

DRUGS (1)
  1. HIZENTRA [Suspect]
     Active Substance: HUMAN IMMUNOGLOBULIN G
     Indication: Immunodeficiency common variable
     Dosage: 20 GRAM, QW
     Route: 058
     Dates: start: 202201

REACTIONS (4)
  - Anxiety [Unknown]
  - Insomnia [Unknown]
  - Pruritus [Unknown]
  - Swelling [Unknown]
